FAERS Safety Report 10379282 (Version 1)
Quarter: 2014Q3

REPORT INFORMATION
  Report Type: Spontaneous
  Country: US (occurrence: US)
  Receive Date: 20140812
  Receipt Date: 20140812
  Transmission Date: 20150326
  Serious: No
  Sender: FDA-Public Use
  Company Number: US-BRISTOL-MYERS SQUIBB COMPANY-20619235

PATIENT
  Age: 58 Year
  Sex: Female

DRUGS (2)
  1. COMBIVIR [Concomitant]
     Active Substance: LAMIVUDINE\ZIDOVUDINE
  2. REYATAZ [Suspect]
     Active Substance: ATAZANAVIR SULFATE
     Dosage: LAST DOSE: 04APR14
     Dates: start: 2007

REACTIONS (3)
  - Retching [Unknown]
  - Nausea [Unknown]
  - Abdominal discomfort [Unknown]
